FAERS Safety Report 9537780 (Version 1)
Quarter: 2013Q3

REPORT INFORMATION
  Report Type: Report from Study
  Country: AU (occurrence: AU)
  Receive Date: 20130919
  Receipt Date: 20130919
  Transmission Date: 20140515
  Serious: Yes (Life-Threatening, Other)
  Sender: FDA-Public Use
  Company Number: AU-B.I. PHARMACEUTICALS,INC./RIDGEFIELD-2013-BI-28542GD

PATIENT
  Sex: 0

DRUGS (2)
  1. CLONIDINE [Suspect]
     Indication: PAIN
     Route: 037
  2. MORPHINE OR HYDROMORPHONE [Suspect]
     Indication: PAIN
     Route: 037

REACTIONS (2)
  - Overdose [Unknown]
  - Device failure [Unknown]
